FAERS Safety Report 6196226-X (Version None)
Quarter: 2009Q2

REPORT INFORMATION
  Report Type: 
  Country: None (occurrence: None)
  Receive Date: 20090520
  Receipt Date: 20090511
  Transmission Date: 20091009
  Serious: Yes (Other)
  Sender: FDA-Public Use
  Company Number: DE-ASTRAZENECA-2009PK01257

PATIENT
  Age: 41 Year
  Sex: Male
  Weight: 86 kg

DRUGS (4)
  1. ANTRA I.V. [Suspect]
     Indication: GASTRIC HAEMORRHAGE
     Route: 042
     Dates: start: 20090327, end: 20090330
  2. OMEPRAZOLE [Suspect]
     Indication: GASTRIC HAEMORRHAGE
     Route: 048
     Dates: start: 20090327, end: 20090330
  3. CEFUROXIME [Concomitant]
     Route: 042
     Dates: start: 20090327
  4. METRONIDAZOLE HCL [Concomitant]
     Route: 042
     Dates: start: 20090327

REACTIONS (1)
  - HYPERBILIRUBINAEMIA [None]
